FAERS Safety Report 25621855 (Version 1)
Quarter: 2025Q3

REPORT INFORMATION
  Report Type: Report from Study
  Country: US (occurrence: US)
  Receive Date: 20250730
  Receipt Date: 20250730
  Transmission Date: 20251021
  Serious: Yes (Other)
  Sender: ACADIA PHARMACEUTICALS
  Company Number: US-ACADIA PHARMACEUTICALS INC.-ACA-2025-PIM-008690

PATIENT
  Sex: Female

DRUGS (1)
  1. NUPLAZID [Suspect]
     Active Substance: PIMAVANSERIN TARTRATE
     Indication: Parkinson^s disease psychosis
     Route: 065

REACTIONS (6)
  - Delirium [Unknown]
  - Urinary incontinence [Unknown]
  - Memory impairment [Unknown]
  - Patient elopement [Unknown]
  - Gait disturbance [Unknown]
  - Drug effect less than expected [Unknown]
